FAERS Safety Report 10028790 (Version 2)
Quarter: 2014Q2

REPORT INFORMATION
  Report Type: Report from Study
  Country: BR (occurrence: BR)
  Receive Date: 20140321
  Receipt Date: 20140630
  Transmission Date: 20141212
  Serious: Yes (Hospitalization, Disabling, Other)
  Sender: FDA-Public Use
  Company Number: BR-ABBVIE-14P-020-1212427-00

PATIENT
  Age: 45 Year
  Sex: Female
  Weight: 70 kg

DRUGS (11)
  1. HUMIRA [Suspect]
     Indication: RHEUMATOID ARTHRITIS
     Route: 058
     Dates: start: 20120701, end: 20140301
  2. FOLIC ACID [Concomitant]
     Indication: PROPHYLAXIS
     Route: 048
     Dates: start: 1994
  3. FOLIC ACID [Concomitant]
     Indication: LIVER DISORDER
  4. NIMESULIDE [Concomitant]
     Indication: ANTIINFLAMMATORY THERAPY
     Dosage: 1 TABLET IN THE MORNING 1 TABLET AT NIGHT
     Route: 048
     Dates: start: 201312
  5. NIMESULIDE [Concomitant]
     Indication: ANALGESIC THERAPY
  6. ARAVA [Concomitant]
     Indication: RHEUMATOID ARTHRITIS
     Dosage: AT NIGHT
     Route: 048
     Dates: start: 2008
  7. METHOTREXATE [Concomitant]
     Indication: RHEUMATOID ARTHRITIS
     Dosage: IN FASTING
     Route: 048
     Dates: start: 1994
  8. DRAMIN [Concomitant]
     Indication: PROPHYLAXIS OF NAUSEA AND VOMITING
     Dosage: WHEN SHE TAKES METHOTREXATE
     Route: 048
     Dates: start: 2013
  9. ARAVA [Concomitant]
     Indication: RHEUMATOID ARTHRITIS
     Route: 048
     Dates: start: 2008
  10. LOSARTAN POTASSIUM [Concomitant]
     Indication: HYPERTENSION
     Route: 048
     Dates: start: 2007
  11. HYDROCHLOROTHIAZIDE [Concomitant]
     Indication: HYPERTENSION
     Route: 048
     Dates: start: 2007

REACTIONS (20)
  - Activities of daily living impaired [Not Recovered/Not Resolved]
  - Mobility decreased [Not Recovered/Not Resolved]
  - Osteoarthritis [Recovered/Resolved]
  - Osteoarthritis [Unknown]
  - Joint stiffness [Not Recovered/Not Resolved]
  - Joint swelling [Recovered/Resolved]
  - Pyrexia [Not Recovered/Not Resolved]
  - Discomfort [Not Recovered/Not Resolved]
  - Joint swelling [Unknown]
  - Drug ineffective [Recovered/Resolved]
  - Anaemia [Unknown]
  - Pain [Not Recovered/Not Resolved]
  - Rheumatoid factor positive [Unknown]
  - Generalised oedema [Unknown]
  - Rheumatoid arthritis [Unknown]
  - Pain [Not Recovered/Not Resolved]
  - Fatigue [Not Recovered/Not Resolved]
  - Pyrexia [Not Recovered/Not Resolved]
  - Muscle rigidity [Recovering/Resolving]
  - Nausea [Unknown]
